FAERS Safety Report 19233953 (Version 5)
Quarter: 2021Q3

REPORT INFORMATION
  Report Type: Report from Study
  Country: DE (occurrence: DE)
  Receive Date: 20210508
  Receipt Date: 20210708
  Transmission Date: 20211014
  Serious: Yes (Death, Life-Threatening, Hospitalization)
  Sender: FDA-Public Use
  Company Number: DE-EXELIXIS-XL18421040142

PATIENT
  Age: 58 Year
  Sex: Female
  Weight: 56.8 kg

DRUGS (7)
  1. EZEHRON DUO [Concomitant]
     Indication: HYPERCHOLESTEROLAEMIA
     Dosage: DOSE 5/10 UNIT? MG/MG
     Route: 048
     Dates: start: 20210429
  2. PANTOPRAZOL [Concomitant]
     Active Substance: PANTOPRAZOLE SODIUM
     Indication: ABDOMINAL PAIN UPPER
     Dosage: 20 MG, QD
     Route: 048
     Dates: start: 20210412
  3. CABOZANTINIB [Suspect]
     Active Substance: CABOZANTINIB
     Indication: METASTATIC RENAL CELL CARCINOMA
     Dosage: 60 MG, QD
     Route: 048
     Dates: start: 20210401, end: 20210426
  4. LERCANIDIPINE [Concomitant]
     Active Substance: LERCANIDIPINE
     Indication: HYPERTENSION
     Dosage: 10 MG, QD
     Route: 048
     Dates: start: 20210414
  5. PANTOPRAZOL [Concomitant]
     Active Substance: PANTOPRAZOLE SODIUM
     Indication: ABDOMINAL PAIN UPPER
  6. VITAMIN D3 [Concomitant]
     Active Substance: CHOLECALCIFEROL
     Indication: BONE DISORDER
     Dosage: 25 UG, QD
     Route: 048
     Dates: start: 2018, end: 20210427
  7. CABOZANTINIB [Suspect]
     Active Substance: CABOZANTINIB
     Dosage: 40 MG, QD
     Route: 048
     Dates: start: 20210428, end: 20210430

REACTIONS (4)
  - Gastritis [Unknown]
  - Pneumonia [Not Recovered/Not Resolved]
  - Peritonitis [Not Recovered/Not Resolved]
  - Jejunal perforation [Recovering/Resolving]

NARRATIVE: CASE EVENT DATE: 20210430
